FAERS Safety Report 12012958 (Version 1)
Quarter: 2016Q1

REPORT INFORMATION
  Report Type: Spontaneous
  Country: IT (occurrence: IT)
  Receive Date: 20160205
  Receipt Date: 20160205
  Transmission Date: 20160526
  Serious: Yes (Other)
  Sender: FDA-Public Use
  Company Number: IT-PFIZER INC-2016068960

PATIENT
  Age: 69 Year
  Sex: Male

DRUGS (1)
  1. BASSADO [Suspect]
     Active Substance: DOXYCYCLINE HYCLATE
     Indication: SKIN LESION
     Dosage: 100 MG, DAILY
     Route: 048
     Dates: start: 20160129, end: 20160130

REACTIONS (4)
  - Face oedema [Recovered/Resolved]
  - Palatal oedema [Recovered/Resolved]
  - Pruritus [Recovered/Resolved]
  - Dermatitis bullous [Recovered/Resolved]

NARRATIVE: CASE EVENT DATE: 20160129
